FAERS Safety Report 7948218-5 (Version None)
Quarter: 2011Q4

REPORT INFORMATION
  Report Type: 
  Country: None (occurrence: None)
  Receive Date: 20111121
  Receipt Date: 20111109
  Transmission Date: 20120403
  Serious: Yes (Other)
  Sender: FDA-Public Use
  Company Number: DSA_48048_2011

PATIENT
  Sex: Female

DRUGS (13)
  1. CARDIZEM LA [Suspect]
     Indication: PRODUCT USED FOR UNKNOWN INDICATION
     Dosage: (DF)
  2. CLONIDINE HYDROCHLORIDE [Suspect]
     Indication: THYROID DISORDER
     Dosage: (0.1 MG
  3. DYAZIDE [Concomitant]
  4. VITAMIN D [Concomitant]
  5. LEVOTHYROXINE SODIUM [Suspect]
     Indication: THYROID DISORDER
     Dosage: (300 MG BID ORAL)
     Route: 048
  6. DIGOXIN [Concomitant]
  7. GILENYA [Suspect]
     Indication: PRODUCT USED FOR UNKNOWN INDICATION
     Dosage: (0.5 MG QD ORAL)
  8. LISINOPRIL [Suspect]
     Indication: PRODUCT USED FOR UNKNOWN INDICATION
     Dosage: (10 MG BID)
  9. PROZAC [Concomitant]
  10. DIAZEPAM [Concomitant]
  11. LAXATIVES [Concomitant]
  12. LOPRESSOR [Concomitant]
  13. AMITIZA [Concomitant]

REACTIONS (2)
  - ATRIOVENTRICULAR BLOCK [None]
  - HYPERTENSIVE CRISIS [None]
